FAERS Safety Report 18535317 (Version 1)
Quarter: 2020Q4

REPORT INFORMATION
  Report Type: Spontaneous
  Country: BR (occurrence: BR)
  Receive Date: 20201123
  Receipt Date: 20201123
  Transmission Date: 20210114
  Serious: Yes (Other)
  Sender: FDA-Public Use
  Company Number: BR-ALLERGAN-2043670US

PATIENT
  Sex: Female

DRUGS (3)
  1. FOSFOMYCIN TROMETHAMINE - BP [Suspect]
     Active Substance: FOSFOMYCIN TROMETHAMINE
     Indication: URINARY TRACT INFECTION
     Dosage: 1 DF, SINGLE
     Route: 048
     Dates: start: 20201031, end: 20201031
  2. FOSFOMYCIN TROMETHAMINE - BP [Suspect]
     Active Substance: FOSFOMYCIN TROMETHAMINE
     Dosage: 1 DF, SINGLE
     Route: 048
     Dates: start: 20201103, end: 20201103
  3. ENALAPRIL [Concomitant]
     Active Substance: ENALAPRIL

REACTIONS (16)
  - Dehydration [Not Recovered/Not Resolved]
  - Tremor [Recovered/Resolved]
  - Anaphylactic shock [Recovered/Resolved]
  - Product use issue [Unknown]
  - Delirium [Not Recovered/Not Resolved]
  - Dry eye [Unknown]
  - Decreased appetite [Recovered/Resolved]
  - Balance disorder [Not Recovered/Not Resolved]
  - Visual impairment [Not Recovered/Not Resolved]
  - Toothache [Recovered/Resolved]
  - Taste disorder [Recovered/Resolved]
  - Tooth discolouration [Not Recovered/Not Resolved]
  - Ear pain [Recovered/Resolved]
  - Headache [Recovered/Resolved]
  - Fatigue [Not Recovered/Not Resolved]
  - Vulvovaginitis [Recovered/Resolved]

NARRATIVE: CASE EVENT DATE: 20201031
